FAERS Safety Report 11124491 (Version 2)
Quarter: 2015Q2

REPORT INFORMATION
  Report Type: Spontaneous
  Country: US (occurrence: None)
  Receive Date: 20150518
  Receipt Date: 20150527
  Transmission Date: 20150821
  Serious: Yes (Hospitalization)
  Sender: FDA-Public Use
  Company Number: KAD201505-001145

PATIENT
  Age: 58 Year
  Sex: Male

DRUGS (6)
  1. NORCO (VICODIN) (PARACETAMOL, HYDROCODONE BITARTRATE) (PARACETAMOL, HYDROCODONE BITARTRATE) [Concomitant]
  2. LYRICA [Concomitant]
     Active Substance: PREGABALIN
  3. BENICAR [Concomitant]
     Active Substance: OLMESARTAN MEDOXOMIL
  4. VIEKIRA PAK [Suspect]
     Active Substance: DASABUVIR\OMBITASVIR\PARITAPREVIR\RITONAVIR
     Indication: HEPATITIS C
     Route: 048
     Dates: start: 20150311, end: 201504
  5. RIBAVIRIN (RIBAVIRIN) [Suspect]
     Active Substance: RIBAVIRIN
     Indication: HEPATITIS C
     Route: 048
     Dates: start: 20150311, end: 201504
  6. WELLBUTRIN XL (BUPROPION HYDROCHLORIDE) (BUPROPION HYDROCHLORIDE) [Concomitant]

REACTIONS (12)
  - Lethargy [None]
  - Diarrhoea [None]
  - Blood urea increased [None]
  - Dehydration [None]
  - Mouth ulceration [None]
  - Leukocytosis [None]
  - Red blood cell sedimentation rate increased [None]
  - Asthenia [None]
  - Nausea [None]
  - Peripheral swelling [None]
  - White blood cell count increased [None]
  - Blood bilirubin increased [None]

NARRATIVE: CASE EVENT DATE: 201504
